FAERS Safety Report 18402771 (Version 1)
Quarter: 2020Q4

REPORT INFORMATION
  Report Type: Spontaneous
  Country: DE (occurrence: DE)
  Receive Date: 20201019
  Receipt Date: 20201019
  Transmission Date: 20210114
  Serious: Yes (Life-Threatening, Other)
  Sender: FDA-Public Use
  Company Number: DE-TEVA-2020-DE-1838057

PATIENT
  Age: 55 Year
  Sex: Female
  Weight: 78 kg

DRUGS (5)
  1. OXALIPLATIN. [Suspect]
     Active Substance: OXALIPLATIN
     Dosage: IN 500 ML GLUCOSE 5% START: 12:30, 160 MG
     Route: 042
     Dates: start: 20200901
  2. CETUXIMAB. [Concomitant]
     Active Substance: CETUXIMAB
     Dosage: 11:00 TO 12:00, 470 MG
     Route: 042
     Dates: start: 20200901
  3. CLEMASTINE [Concomitant]
     Active Substance: CLEMASTINE
     Indication: PREMEDICATION
     Dosage: PREMEDICATION: DEXA, GRANISETRON, CLEMASTIN 500ML NACL + 500 ML G5%, 2 MG
     Route: 042
     Dates: start: 20200901
  4. DEXAMETASON [Concomitant]
     Active Substance: DEXAMETHASONE
     Indication: PREMEDICATION
     Dosage: PREMEDICATION: DEXA, GRANISETRON, CLEMASTIN 500ML NACL + 500 ML G5%, 8 MG
     Route: 042
     Dates: start: 20200901
  5. GRANISETRON [Concomitant]
     Active Substance: GRANISETRON
     Indication: PREMEDICATION
     Dosage: PREMEDICATION: DEXA, GRANISETRON, CLEMASTIN 500ML NACL + 500 ML G5%, 2 MG
     Route: 042
     Dates: start: 20200901

REACTIONS (6)
  - Loss of consciousness [Unknown]
  - Paraesthesia [Unknown]
  - Feeling hot [Unknown]
  - Throat tightness [Unknown]
  - Adverse reaction [Unknown]
  - Dyspnoea [Unknown]

NARRATIVE: CASE EVENT DATE: 20200901
